FAERS Safety Report 15360335 (Version 2)
Quarter: 2018Q3

REPORT INFORMATION
  Report Type: Spontaneous
  Country: JP (occurrence: JP)
  Receive Date: 20180907
  Receipt Date: 20180914
  Transmission Date: 20181010
  Serious: Yes (Hospitalization, Other)
  Sender: FDA-Public Use
  Company Number: JP-AMGEN-JPNSP2018113340

PATIENT
  Age: 64 Year
  Sex: Male
  Weight: 54 kg

DRUGS (14)
  1. RANMARK [Suspect]
     Active Substance: DENOSUMAB
     Indication: METASTASES TO BONE
     Dosage: 120 MG, Q4WK
     Route: 058
     Dates: start: 20170704, end: 20171121
  2. OLMESARTAN [Concomitant]
     Active Substance: OLMESARTAN
     Indication: HYPERTENSION
     Dosage: 20 MG, QD
     Route: 048
  3. CALONAL [Concomitant]
     Active Substance: ACETAMINOPHEN
     Indication: CANCER PAIN
     Dosage: 4 DF, QID
     Route: 048
  4. CELECOX [Concomitant]
     Active Substance: CELECOXIB
     Indication: CANCER PAIN
     Dosage: 200 MG, BID
     Route: 048
  5. ARGAMATE [Concomitant]
     Active Substance: CALCIUM POLYSTYRENE SULFONATE
     Indication: HYPERKALAEMIA
     Dosage: 75 G, TID
     Route: 048
  6. ATEZOLIZUMAB. [Suspect]
     Active Substance: ATEZOLIZUMAB
     Indication: PRODUCT USED FOR UNKNOWN INDICATION
     Dosage: UNK
     Route: 065
  7. RINDERON V [Concomitant]
     Active Substance: BETAMETHASONE VALERATE
     Indication: METASTASES TO CENTRAL NERVOUS SYSTEM
     Dosage: 1.5 MG, QD
     Route: 048
  8. D?SORBITOL [Concomitant]
     Indication: METASTASES TO CENTRAL NERVOUS SYSTEM
     Dosage: 15 ML, QD
     Route: 048
  9. TAKECAB [Concomitant]
     Active Substance: VONOPRAZAN FUMURATE
     Indication: GASTROOESOPHAGEAL REFLUX DISEASE
     Dosage: 10 MG, QD
     Route: 048
  10. SYMPROIC [Concomitant]
     Active Substance: NALDEMEDINE
     Indication: CONSTIPATION
     Dosage: 0.2 MG, QD
     Route: 048
  11. LAC?B GRANULAR POWDER N [Concomitant]
     Indication: CONSTIPATION
     Dosage: 3 G, TID
     Route: 048
  12. MAGNESIUM OXIDE. [Concomitant]
     Active Substance: MAGNESIUM OXIDE
     Indication: CONSTIPATION
     Dosage: 1320 MG, BID
     Route: 048
  13. OXYCONTIN [Concomitant]
     Active Substance: OXYCODONE HYDROCHLORIDE
     Indication: CANCER PAIN
     Dosage: 80 MG, BID
     Route: 048
  14. NAUZELIN [Concomitant]
     Active Substance: DOMPERIDONE
     Indication: NAUSEA
     Dosage: 30 MG, TID
     Route: 048

REACTIONS (1)
  - Osteonecrosis of jaw [Recovering/Resolving]

NARRATIVE: CASE EVENT DATE: 20180527
